FAERS Safety Report 6408387-5 (Version None)
Quarter: 2009Q4

REPORT INFORMATION
  Report Type: 
  Country: None (occurrence: None)
  Receive Date: 20091016
  Receipt Date: 20091003
  Transmission Date: 20100525
  Serious: Yes (Hospitalization, Other)
  Sender: FDA-Public Use
  Company Number: AUR-APL-2009/00782

PATIENT
  Age: 82 Year
  Sex: Female

DRUGS (3)
  1. ALENDRONATE SODIUM [Suspect]
     Indication: OSTEOPOROSIS
     Dosage: 70MG, WEEKLY, UNK
     Dates: start: 20000101
  2. CALCIUM [Concomitant]
  3. VITAMIN D [Concomitant]

REACTIONS (2)
  - FALL [None]
  - FEMUR FRACTURE [None]
